FAERS Safety Report 5130250-0 (Version None)
Quarter: 2006Q4

REPORT INFORMATION
  Report Type: 
  Country: None (occurrence: None)
  Receive Date: 20061013
  Receipt Date: 20060929
  Transmission Date: 20070319
  Serious: Yes (Hospitalization)
  Sender: FDA-Public Use
  Company Number: REM_00271_2006

PATIENT
  Age: 15 Year
  Sex: Male
  Weight: 70.3 kg

DRUGS (1)
  1. REMODULIN [Suspect]
     Indication: PULMONARY HYPERTENSION
     Dosage: 50 NG/KG/MIN CONTINUOUS IV
     Route: 042
     Dates: start: 20040801, end: 20051118

REACTIONS (5)
  - BLOOD CULTURE POSITIVE [None]
  - CENTRAL LINE INFECTION [None]
  - DIARRHOEA [None]
  - PSEUDOMONAS INFECTION [None]
  - VOMITING [None]
